FAERS Safety Report 7724829-7 (Version None)
Quarter: 2011Q3

REPORT INFORMATION
  Report Type: 
  Country: None (occurrence: None)
  Receive Date: 20110829
  Receipt Date: 20110811
  Transmission Date: 20111222
  Serious: Yes (Hospitalization, Other)
  Sender: FDA-Public Use
  Company Number: 2011MA011687

PATIENT
  Age: 12 Year
  Sex: Female

DRUGS (3)
  1. HYDROCORTISONE 0.05% CREAM [Suspect]
     Indication: ERYTHEMA MULTIFORME
     Dosage: 100 MG;QID;IV
     Route: 042
     Dates: start: 20070101
  2. HYDROXYCHLOROQUINE SULFATE [Suspect]
     Indication: SYSTEMIC LUPUS ERYTHEMATOSUS
     Dosage: 300 MG;QD
  3. HYDROXYCHLOROQUINE SULFATE [Suspect]
     Indication: STEVENS-JOHNSON SYNDROME
     Dosage: 300 MG;QD

REACTIONS (12)
  - CARDIOMEGALY [None]
  - HEAVY EXPOSURE TO ULTRAVIOLET LIGHT [None]
  - PROTEINURIA [None]
  - WHITE BLOOD CELL COUNT DECREASED [None]
  - PLEURAL EFFUSION [None]
  - HAEMOGLOBIN DECREASED [None]
  - STEVENS-JOHNSON SYNDROME [None]
  - SYSTEMIC LUPUS ERYTHEMATOSUS [None]
  - LUPUS NEPHRITIS [None]
  - PERICARDIAL EFFUSION [None]
  - RED BLOOD CELL MORPHOLOGY ABNORMAL [None]
  - SEROSITIS [None]
